FAERS Safety Report 15697609 (Version 2)
Quarter: 2019Q1

REPORT INFORMATION
  Report Type: Report from Study
  Country: US (occurrence: US)
  Receive Date: 20181207
  Receipt Date: 20190208
  Transmission Date: 20190417
  Serious: Yes (Hospitalization)
  Sender: FDA-Public Use
  Company Number: US-BIOGEN-2018BI00668276

PATIENT
  Age: 30 Year
  Sex: Female

DRUGS (4)
  1. TECFIDERA [Suspect]
     Active Substance: DIMETHYL FUMARATE
     Dosage: MAINTENANCE DOSE
     Route: 048
  2. OXCARBAZEPINE. [Concomitant]
     Active Substance: OXCARBAZEPINE
     Indication: PRODUCT USED FOR UNKNOWN INDICATION
     Route: 065
  3. TYSABRI [Suspect]
     Active Substance: NATALIZUMAB
     Indication: MULTIPLE SCLEROSIS
     Dosage: INFUSED OVER 1 HOUR
     Route: 042
  4. TECFIDERA [Suspect]
     Active Substance: DIMETHYL FUMARATE
     Indication: MULTIPLE SCLEROSIS
     Dosage: STARTING DOSE
     Route: 048
     Dates: start: 2015

REACTIONS (13)
  - Vertigo [Unknown]
  - Musculoskeletal disorder [Unknown]
  - Anal incontinence [Unknown]
  - Gait disturbance [Unknown]
  - Sepsis [Recovered/Resolved]
  - Memory impairment [Unknown]
  - Blood pressure orthostatic abnormal [Unknown]
  - Escherichia infection [Recovered/Resolved]
  - Tremor [Unknown]
  - Clumsiness [Unknown]
  - Paralysis [Recovered/Resolved]
  - Loss of consciousness [Not Recovered/Not Resolved]
  - Post concussion syndrome [Unknown]

NARRATIVE: CASE EVENT DATE: 2015
